FAERS Safety Report 7051798-8 (Version None)
Quarter: 2010Q4

REPORT INFORMATION
  Report Type: 
  Country: None (occurrence: None)
  Receive Date: 20101019
  Receipt Date: 20101009
  Transmission Date: 20110411
  Serious: Yes (Other)
  Sender: FDA-Public Use
  Company Number: GB-JNJFOC-20101003583

PATIENT
  Age: 56 Year
  Sex: Female

DRUGS (6)
  1. CISAPRIDE [Suspect]
     Indication: GASTROINTESTINAL MOTILITY DISORDER
     Route: 065
  2. INSULIN [Concomitant]
     Indication: INADEQUATE DIET
     Route: 042
  3. ALFACALCIDOL [Concomitant]
     Indication: CALCIUM METABOLISM DISORDER
     Route: 065
  4. GLUCOSE 10% [Concomitant]
     Indication: ELECTROLYTE IMBALANCE
     Route: 042
  5. POTASSIUM CHLORIDE [Concomitant]
     Indication: ELECTROLYTE IMBALANCE
     Route: 042
  6. CHINESE MEDICATION [Concomitant]
     Indication: PRODUCT USED FOR UNKNOWN INDICATION
     Route: 065

REACTIONS (2)
  - ARRHYTHMIA [None]
  - TACHYCARDIA [None]
